FAERS Safety Report 8864463 (Version 1)
Quarter: 2012Q4

REPORT INFORMATION
  Report Type: 
  Country: US (occurrence: US)
  Receive Date: 20121024
  Receipt Date: 20121024
  Transmission Date: 20130627
  Serious: No
  Sender: FDA-Public Use
  Company Number: US-AMGEN-USASP2011067705

PATIENT
  Age: 59 Year
  Sex: Male

DRUGS (10)
  1. ENBREL [Suspect]
     Indication: PRODUCT USED FOR UNKNOWN INDICATION
     Dosage: 50 mg, qwk
     Route: 058
     Dates: start: 201105
  2. CELEBREX [Concomitant]
     Dosage: 200 mg, UNK
  3. PREDNISONE [Concomitant]
     Dosage: 2.5 mg, UNK
  4. LOVASTATIN [Concomitant]
     Dosage: 20 mg, UNK
  5. CLONAZEPAM [Concomitant]
     Dosage: 0.5 mg, UNK
  6. CITALOPRAM [Concomitant]
     Dosage: 10 mg, UNK
  7. AMIODARONE [Concomitant]
     Dosage: 200 mg, UNK
  8. ZANTAC [Concomitant]
     Dosage: 150 mg, UNK
  9. NORCO [Concomitant]
  10. PLAVIX [Concomitant]
     Dosage: 300 mg, UNK

REACTIONS (3)
  - Erythema [Unknown]
  - Headache [Unknown]
  - Fatigue [Unknown]
